FAERS Safety Report 13791662 (Version 1)
Quarter: 2017Q3

REPORT INFORMATION
  Report Type: Report from Study
  Country: CA (occurrence: CA)
  Receive Date: 20170725
  Receipt Date: 20170725
  Transmission Date: 20171127
  Serious: Yes (Hospitalization)
  Sender: FDA-Public Use
  Company Number: CA-TAKEDA-2017TUS014899

PATIENT
  Age: 36 Year
  Sex: Female

DRUGS (3)
  1. TRIPTAN                            /01346901/ [Concomitant]
     Indication: MIGRAINE
     Dosage: UNK
  2. CORTIFOAM [Concomitant]
     Active Substance: HYDROCORTISONE ACETATE
     Dosage: UNK
  3. VEDOLIZUMAB [Suspect]
     Active Substance: VEDOLIZUMAB
     Indication: COLITIS ULCERATIVE
     Dosage: 300 MG, UNK
     Route: 042
     Dates: start: 20170628

REACTIONS (2)
  - Colitis ulcerative [Unknown]
  - Gastroenteritis salmonella [Recovering/Resolving]

NARRATIVE: CASE EVENT DATE: 201707
